FAERS Safety Report 4852456-8 (Version None)
Quarter: 2005Q4

REPORT INFORMATION
  Report Type: 
  Country: None (occurrence: None)
  Receive Date: 20051213
  Receipt Date: 20051122
  Transmission Date: 20060501
  Serious: Yes (Hospitalization)
  Sender: FDA-Public Use
  Company Number: PHBS2005FR17166

PATIENT
  Age: 33 Year
  Sex: Female

DRUGS (6)
  1. ANAFRANIL [Suspect]
     Route: 048
     Dates: start: 20050831, end: 20050831
  2. TEGRETOL [Suspect]
     Route: 048
     Dates: start: 20050831, end: 20050831
  3. TRANXENE [Suspect]
     Route: 048
     Dates: start: 20050831, end: 20050831
  4. IMOVANE [Suspect]
     Route: 048
     Dates: start: 20050831, end: 20050831
  5. EFFEXOR [Suspect]
     Route: 048
     Dates: start: 20050831, end: 20050831
  6. ESCITALOPRAM OXALATE [Suspect]
     Route: 048
     Dates: start: 20050831, end: 20050831

REACTIONS (7)
  - COMA [None]
  - ELECTROCARDIOGRAM QRS COMPLEX ABNORMAL [None]
  - GLASGOW COMA SCALE ABNORMAL [None]
  - INTENTIONAL DRUG MISUSE [None]
  - INTUBATION [None]
  - MULTIPLE DRUG OVERDOSE [None]
  - SINOATRIAL BLOCK [None]
